FAERS Safety Report 4608910-7 (Version None)
Quarter: 2005Q1

REPORT INFORMATION
  Report Type: 
  Country: None (occurrence: None)
  Receive Date: 20050309
  Receipt Date: 20050301
  Transmission Date: 20050727
  Serious: Yes (Other)
  Sender: FDA-Public Use
  Company Number: 2005039121

PATIENT
  Sex: Male

DRUGS (5)
  1. ZYRTEC [Suspect]
     Indication: ILL-DEFINED DISORDER
  2. ASPIRIN [Concomitant]
  3. WARFARIN SODIUM [Concomitant]
  4. ATORVASTATIN CALCIUM [Concomitant]
  5. AMLODIPINE BESYLATE [Concomitant]

REACTIONS (2)
  - HAEMORRHAGE SUBCUTANEOUS [None]
  - OEDEMA PERIPHERAL [None]
